FAERS Safety Report 15049664 (Version 2)
Quarter: 2018Q3

REPORT INFORMATION
  Report Type: Report from Study
  Country: US (occurrence: US)
  Receive Date: 20180622
  Receipt Date: 20180711
  Transmission Date: 20181010
  Serious: No
  Sender: FDA-Public Use
  Company Number: PHEH2018US024898

PATIENT
  Sex: Male

DRUGS (1)
  1. SIGNIFOR [Suspect]
     Active Substance: PASIREOTIDE
     Indication: PRODUCT USED FOR UNKNOWN INDICATION
     Dosage: 0.6 MG/ML, QD
     Route: 065

REACTIONS (4)
  - Contusion [Not Recovered/Not Resolved]
  - Haematoma [Unknown]
  - Malaise [Unknown]
  - Blood viscosity decreased [Unknown]
